FAERS Safety Report 13540969 (Version 11)
Quarter: 2020Q1

REPORT INFORMATION
  Report Type: Report from Study
  Country: US (occurrence: US)
  Receive Date: 20170512
  Receipt Date: 20200101
  Transmission Date: 20200409
  Serious: Yes (Death, Hospitalization, Other)
  Sender: FDA-Public Use
  Company Number: US-ARIAD-2017US007665

PATIENT
  Age: 79 Year
  Sex: Female

DRUGS (4)
  1. PONATINIB [Suspect]
     Active Substance: PONATINIB
     Indication: CHRONIC MYELOID LEUKAEMIA
     Dosage: 45 MILLIGRAM, QD
     Route: 048
     Dates: start: 20170111
  2. PONATINIB [Suspect]
     Active Substance: PONATINIB
     Dosage: UNK
     Route: 048
  3. PONATINIB [Suspect]
     Active Substance: PONATINIB
     Dosage: UNK, QD
     Route: 048
  4. PONATINIB [Suspect]
     Active Substance: PONATINIB
     Dosage: 15 MILLIGRAM, QD
     Route: 048

REACTIONS (15)
  - Diarrhoea [Unknown]
  - Skin exfoliation [Unknown]
  - Pneumonia [Unknown]
  - Malaise [Unknown]
  - Myocardial infarction [Fatal]
  - Dysstasia [Unknown]
  - Skin wrinkling [Unknown]
  - Dry skin [Unknown]
  - Fall [Unknown]
  - Skin fissures [Unknown]
  - Rash [Not Recovered/Not Resolved]
  - Cardiac failure congestive [Unknown]
  - Coronary artery occlusion [Unknown]
  - Blister [Unknown]
  - Off label use [Unknown]

NARRATIVE: CASE EVENT DATE: 20190301
